FAERS Safety Report 17803502 (Version 9)
Quarter: 2022Q1

REPORT INFORMATION
  Report Type: Spontaneous
  Country: PL (occurrence: PL)
  Receive Date: 20200519
  Receipt Date: 20220307
  Transmission Date: 20220424
  Serious: Yes (Other)
  Sender: FDA-Public Use
  Company Number: None

PATIENT
  Age: 9 Year
  Sex: Male

DRUGS (23)
  1. DOXORUBICIN [Suspect]
     Active Substance: DOXORUBICIN
     Indication: Rhabdomyosarcoma
     Dosage: 160 MG/M2 (CUMULATIVE DOSES)
     Route: 065
  2. DOXORUBICIN [Suspect]
     Active Substance: DOXORUBICIN
     Indication: Alveolar rhabdomyosarcoma
  3. TOPOTECAN [Suspect]
     Active Substance: TOPOTECAN HYDROCHLORIDE
     Indication: Rhabdomyosarcoma
     Dosage: 28 MG/M2 (CUMULATIVE DOSES)
     Route: 065
  4. TOPOTECAN [Suspect]
     Active Substance: TOPOTECAN HYDROCHLORIDE
     Indication: Alveolar rhabdomyosarcoma
  5. ETOPOSIDE [Suspect]
     Active Substance: ETOPOSIDE
     Indication: Rhabdomyosarcoma
     Dosage: 3600 MG/M2 (CUMULATIVE DOSES)
     Route: 042
  6. ETOPOSIDE [Suspect]
     Active Substance: ETOPOSIDE
     Indication: Alveolar rhabdomyosarcoma
     Dosage: 2000 MG/M2 (CUMULATIVE DOSES)
     Route: 048
  7. CARBOPLATIN [Suspect]
     Active Substance: CARBOPLATIN
     Indication: Rhabdomyosarcoma
     Dosage: 6600 MG/M2 (CUMULATIVE DOSES)
     Route: 065
  8. CARBOPLATIN [Suspect]
     Active Substance: CARBOPLATIN
     Indication: Alveolar rhabdomyosarcoma
  9. CYTARABINE [Suspect]
     Active Substance: CYTARABINE
     Indication: Alveolar rhabdomyosarcoma
     Dosage: UNK
     Route: 065
  10. CYCLOPHOSPHAMIDE [Suspect]
     Active Substance: CYCLOPHOSPHAMIDE
     Indication: Rhabdomyosarcoma
     Dosage: 1000 MG/M2, THERAPY ACCORDING TO CWS-2002 CUMULATIVE DOSE, POWDER FOR SOLUTION FOR INJECTION
     Route: 065
  11. CYCLOPHOSPHAMIDE [Suspect]
     Active Substance: CYCLOPHOSPHAMIDE
     Indication: Alveolar rhabdomyosarcoma
  12. IFOSFAMIDE [Suspect]
     Active Substance: IFOSFAMIDE
     Indication: Rhabdomyosarcoma
     Dosage: 54000 MG/M2 (CUMULATIVE DOSES)
     Route: 065
  13. IFOSFAMIDE [Suspect]
     Active Substance: IFOSFAMIDE
     Indication: Alveolar rhabdomyosarcoma
  14. IRINOTECAN [Suspect]
     Active Substance: IRINOTECAN
     Indication: Rhabdomyosarcoma
     Dosage: 65 MG/M2 (1000 MG/M2, ACCORDING TO CWS-2002 CUMULATIVE DOSE, POWDER FOR SOLUTION FOR INJECTION)
     Route: 065
  15. IRINOTECAN [Suspect]
     Active Substance: IRINOTECAN
     Indication: Alveolar rhabdomyosarcoma
  16. VINCRISTINE [Suspect]
     Active Substance: VINCRISTINE
     Indication: Rhabdomyosarcoma
     Dosage: 16.5 MG/M2 (1000 MG/M2, ACCORDING TO CWS-2002 CUMULATIVE DOSE, POWDER FOR SOLUTION FOR INJECTION)
     Route: 065
  17. VINCRISTINE [Suspect]
     Active Substance: VINCRISTINE
     Indication: Alveolar rhabdomyosarcoma
  18. IDARUBICIN [Suspect]
     Active Substance: IDARUBICIN
     Indication: Rhabdomyosarcoma
     Dosage: 80 MG/M2/16.5 MG/M2, 1000 MG/M2, THERAPY ACCORDING TO CWS-2002 CUMULATIVE DOSE, POWDER FOR SOLUTION
     Route: 065
  19. IDARUBICIN [Suspect]
     Active Substance: IDARUBICIN
     Indication: Alveolar rhabdomyosarcoma
  20. CACTINOMYCIN [Suspect]
     Active Substance: CACTINOMYCIN
     Indication: Alveolar rhabdomyosarcoma
     Dosage: 3 MG/M2
     Route: 065
  21. TROFOSFAMIDE [Suspect]
     Active Substance: TROFOSFAMIDE
     Indication: Alveolar rhabdomyosarcoma
     Dosage: 12000 MG/M2 (CUMULATIVE DOSES)
     Route: 065
  22. ACTINOMYCIN D [Suspect]
     Active Substance: DACTINOMYCIN
     Indication: Alveolar rhabdomyosarcoma
     Dosage: 3 MG/M2 (CUMULATIVE DOSES)
     Route: 065
  23. FLUDARABINE [Suspect]
     Active Substance: FLUDARABINE PHOSPHATE
     Indication: Alveolar rhabdomyosarcoma
     Dosage: UNK
     Route: 065

REACTIONS (15)
  - Acute myeloid leukaemia [Unknown]
  - Malignant neoplasm progression [Unknown]
  - Pneumonia fungal [Unknown]
  - Rhabdomyosarcoma recurrent [Unknown]
  - Thrombocytopenia [Unknown]
  - Hyperleukocytosis [Unknown]
  - Anaemia [Unknown]
  - Hepatosplenomegaly [Unknown]
  - Myelodysplastic syndrome [Not Recovered/Not Resolved]
  - Refractory anaemia with an excess of blasts [Unknown]
  - Chromosome analysis abnormal [Unknown]
  - Leukaemia [Unknown]
  - Neoplasm progression [Unknown]
  - Toxicity to various agents [Unknown]
  - Product use in unapproved indication [Unknown]

NARRATIVE: CASE EVENT DATE: 20090101
